FAERS Safety Report 23068744 (Version 1)
Quarter: 2023Q4

REPORT INFORMATION
  Report Type: Spontaneous
  Country: JP (occurrence: JP)
  Receive Date: 20231016
  Receipt Date: 20231016
  Transmission Date: 20240110
  Serious: Yes (Death, Other)
  Sender: FDA-Public Use
  Company Number: JP-RECORDATI-2023001524

PATIENT
  Age: 79 Year
  Sex: Male
  Weight: 51 kg

DRUGS (14)
  1. CARBOPLATIN [Suspect]
     Active Substance: CARBOPLATIN
     Indication: Neuroendocrine carcinoma
     Dosage: UNK UNK, UNKNOWN
     Route: 065
  2. ETOPOSIDE [Suspect]
     Active Substance: ETOPOSIDE
     Indication: Neuroendocrine carcinoma
     Dosage: 140 MG, QD (140 MILLIGRAM DAILY, INJECTION)
     Route: 065
     Dates: start: 20220629, end: 20220629
  3. ISTURISA [Suspect]
     Active Substance: OSILODROSTAT PHOSPHATE
     Indication: Cushing^s syndrome
     Dosage: 2 MG, BID (2 MILLIGRAM DAILY, BID)
     Route: 048
     Dates: start: 20220628, end: 20220630
  4. ISTURISA [Suspect]
     Active Substance: OSILODROSTAT PHOSPHATE
     Dosage: 10 MG, BID (10 MILLIGRAM DAILY, BID)
     Route: 048
     Dates: start: 20220714, end: 20220719
  5. ISTURISA [Suspect]
     Active Substance: OSILODROSTAT PHOSPHATE
     Indication: Neuroendocrine carcinoma
     Dosage: 4 MG, BID (4 MILLIGRAM DAILY, BID)
     Route: 065
     Dates: start: 20220705, end: 20220705
  6. ISTURISA [Suspect]
     Active Substance: OSILODROSTAT PHOSPHATE
     Indication: Ectopic ACTH syndrome
     Dosage: 6 MG, BID (6 MILLIGRAM DAILY, BID)
     Route: 048
     Dates: start: 20220701, end: 20220704
  7. ISTURISA [Suspect]
     Active Substance: OSILODROSTAT PHOSPHATE
     Dosage: 6 MG, BID (6 MILLIGRAM DAILY, BID)
     Route: 048
     Dates: start: 20220711, end: 20220713
  8. ISTURISA [Suspect]
     Active Substance: OSILODROSTAT PHOSPHATE
     Dosage: 6 MG, BID (6 MILLIGRAM DAILY, BID)
     Route: 065
     Dates: start: 20220720, end: 20220720
  9. AMLODIPINE [Concomitant]
     Active Substance: AMLODIPINE BESYLATE
     Indication: Hypertension
     Dosage: 2.5 MG, QD (2.5 MILLIGRAM DAILY)
     Route: 048
     Dates: end: 20220705
  10. APREPITANT [Concomitant]
     Active Substance: APREPITANT
     Indication: Prophylaxis of nausea and vomiting
     Dosage: 125 MG, QD (125 MILLIGRAM DAILY)
     Route: 048
     Dates: start: 20220629, end: 20220701
  11. CABERGOLINE [Concomitant]
     Active Substance: CABERGOLINE
     Indication: Product used for unknown indication
     Dosage: 0.5 MILLIGRAM DAILY
     Route: 048
     Dates: start: 20220628, end: 20220630
  12. CISPLATIN [Concomitant]
     Active Substance: CISPLATIN
     Indication: Product used for unknown indication
     Dosage: 110 MG (110 MILLIGRAM)
     Route: 065
     Dates: start: 20220629, end: 20220629
  13. DURVALUMAB [Concomitant]
     Active Substance: DURVALUMAB
     Indication: Product used for unknown indication
     Dosage: 1500 MG, QD (1500 MILLIGRAM DAILY)
     Route: 065
     Dates: start: 20220629, end: 20220629
  14. LANSOPRAZOLE [Concomitant]
     Active Substance: LANSOPRAZOLE
     Indication: Gastrooesophageal reflux disease
     Dosage: 15 MG, QD (15 MILLIGRAM DAILY)
     Route: 048

REACTIONS (5)
  - Death [Fatal]
  - Lung neoplasm malignant [Fatal]
  - Febrile neutropenia [Unknown]
  - Hypophosphataemia [Not Recovered/Not Resolved]
  - Hypokalaemia [Recovered/Resolved]

NARRATIVE: CASE EVENT DATE: 20220630
